FAERS Safety Report 5098296-9 (Version None)
Quarter: 2006Q3

REPORT INFORMATION
  Report Type: 
  Country: None (occurrence: None)
  Receive Date: 20060906
  Receipt Date: 20060619
  Transmission Date: 20061208
  Serious: No
  Sender: FDA-Public Use
  Company Number: US-GLAXOSMITHKLINE-A0610508A

PATIENT
  Age: 60 Year
  Sex: Male
  Weight: 97.7 kg

DRUGS (1)
  1. REQUIP [Suspect]
     Indication: PARKINSON'S DISEASE
     Dosage: 5MG FOUR TIMES PER DAY
     Route: 048
     Dates: start: 20000101

REACTIONS (1)
  - GAMBLING [None]
